FAERS Safety Report 20683391 (Version 2)
Quarter: 2022Q2

REPORT INFORMATION
  Report Type: Spontaneous
  Country: US (occurrence: US)
  Receive Date: 20220407
  Receipt Date: 20220420
  Transmission Date: 20220721
  Serious: Yes (Hospitalization)
  Sender: FDA-Public Use
  Company Number: US-GLAXOSMITHKLINE-US2022AMR060897

PATIENT
  Age: 80 Year
  Sex: Male
  Weight: 70.5 kg

DRUGS (2)
  1. SOTROVIMAB [Suspect]
     Active Substance: SOTROVIMAB
     Indication: COVID-19
     Dosage: 500 MG, Z, ONCE
     Route: 041
     Dates: start: 20220404
  2. DARBEPOETIN ALFA [Suspect]
     Active Substance: DARBEPOETIN ALFA
     Indication: Anaemia
     Dosage: 60 MG

REACTIONS (3)
  - Asthenia [Unknown]
  - Chills [Unknown]
  - Tremor [Unknown]

NARRATIVE: CASE EVENT DATE: 20220405
